FAERS Safety Report 5716949-3 (Version None)
Quarter: 2008Q2

REPORT INFORMATION
  Report Type: 
  Country: None (occurrence: None)
  Receive Date: 20080422
  Receipt Date: 20080401
  Transmission Date: 20081010
  Serious: Yes (Hospitalization)
  Sender: FDA-Public Use
  Company Number: 1819470-2008-00011

PATIENT
  Age: 42 Year
  Sex: Female

DRUGS (2)
  1. HUMALOG [Suspect]
     Indication: TYPE 1 DIABETES MELLITUS
     Dosage: SUBCUTANEOUS
     Route: 058
  2. HUMULIN N [Suspect]
     Indication: TYPE 1 DIABETES MELLITUS
     Dosage: 10 U, WITH MEALS, SUBCUTANEOUS
     Route: 058

REACTIONS (6)
  - BLOOD GLUCOSE INCREASED [None]
  - BLOOD POTASSIUM DECREASED [None]
  - DEVICE BREAKAGE [None]
  - DEVICE MISUSE [None]
  - DIABETIC KETOACIDOSIS [None]
  - POOR VENOUS ACCESS [None]
